FAERS Safety Report 11346132 (Version 1)
Quarter: 2015Q3

REPORT INFORMATION
  Report Type: Spontaneous
  Country: US (occurrence: US)
  Receive Date: 20150803
  Receipt Date: 20150803
  Transmission Date: 20151125
  Serious: No
  Sender: FDA-Public Use
  Company Number: US-ELI_LILLY_AND_COMPANY-US201002002763

PATIENT
  Age: 8 Year
  Sex: Male

DRUGS (1)
  1. STRATTERA [Suspect]
     Active Substance: ATOMOXETINE HYDROCHLORIDE
     Indication: ATTENTION DEFICIT/HYPERACTIVITY DISORDER
     Dosage: 20 UG, DAILY (1/D)

REACTIONS (5)
  - Conversion disorder [Recovering/Resolving]
  - Abnormal behaviour [Recovering/Resolving]
  - Crying [Recovering/Resolving]
  - Drug ineffective [Recovering/Resolving]
  - Anxiety [Recovering/Resolving]
